FAERS Safety Report 5505689-1 (Version None)
Quarter: 2007Q4

REPORT INFORMATION
  Report Type: 
  Country: None (occurrence: None)
  Receive Date: 20071102
  Receipt Date: 20071024
  Transmission Date: 20080405
  Serious: Yes (Other)
  Sender: FDA-Public Use
  Company Number: CA-PFIZER INC-2007086222

PATIENT
  Sex: Female

DRUGS (2)
  1. CELEBREX [Suspect]
     Indication: PERIARTHRITIS
     Route: 048
     Dates: start: 20070901, end: 20070901
  2. SYNTHROID [Concomitant]
     Indication: BENIGN NEOPLASM OF THYROID GLAND

REACTIONS (3)
  - CONFUSIONAL STATE [None]
  - MIGRAINE [None]
  - VISUAL DISTURBANCE [None]
